FAERS Safety Report 14160105 (Version 2)
Quarter: 2017Q4

REPORT INFORMATION
  Report Type: Spontaneous
  Country: US (occurrence: US)
  Receive Date: 20171106
  Receipt Date: 20171228
  Transmission Date: 20180321
  Serious: Yes (Hospitalization, Other)
  Sender: FDA-Public Use
  Company Number: US-AUROBINDO-AUR-APL-2017-42936

PATIENT
  Age: 16 Year
  Sex: Female

DRUGS (4)
  1. DIVALPROEX SODIUM EXTENDED-RELEASE [Suspect]
     Active Substance: DIVALPROEX SODIUM
     Indication: BIPOLAR DISORDER
     Route: 065
  2. NEFAZODONE [Concomitant]
     Active Substance: NEFAZODONE
     Indication: BIPOLAR DISORDER
     Dosage: ()
  3. OLANZAPINE. [Concomitant]
     Active Substance: OLANZAPINE
     Indication: BIPOLAR DISORDER
     Dosage: ()
  4. DIVALPROEX SODIUM EXTENDED-RELEASE [Suspect]
     Active Substance: DIVALPROEX SODIUM
     Dosage: TOTAL

REACTIONS (4)
  - Intentional overdose [Unknown]
  - Electrocardiogram T wave inversion [Recovered/Resolved]
  - Electrocardiogram ST segment depression [Recovered/Resolved]
  - Toxicity to various agents [Unknown]
